FAERS Safety Report 24553501 (Version 1)
Quarter: 2024Q4

REPORT INFORMATION
  Report Type: Report from Study
  Country: US (occurrence: US)
  Receive Date: 20241028
  Receipt Date: 20241028
  Transmission Date: 20250115
  Serious: No
  Sender: ROCHE
  Company Number: US-ROCHE-3470308

PATIENT
  Sex: Male
  Weight: 26.31 kg

DRUGS (2)
  1. NUTROPIN AQ [Suspect]
     Active Substance: SOMATROPIN
     Indication: Blood growth hormone
     Dosage: 10MG PEN?STRENGTH: 10MG/2ML
     Route: 058
     Dates: start: 20231117
  2. NUTROPIN AQ [Suspect]
     Active Substance: SOMATROPIN
     Indication: Hypopituitarism

REACTIONS (4)
  - Wrong technique in product usage process [Unknown]
  - Product complaint [Unknown]
  - No adverse event [Unknown]
  - Device defective [Unknown]
